FAERS Safety Report 5902570-0 (Version None)
Quarter: 2008Q3

REPORT INFORMATION
  Report Type: 
  Country: None (occurrence: None)
  Receive Date: 20080925
  Receipt Date: 20080912
  Transmission Date: 20090109
  Serious: Yes (Hospitalization)
  Sender: FDA-Public Use
  Company Number: SPV1-2008-01972

PATIENT
  Age: 19 Year
  Sex: Female
  Weight: 74 kg

DRUGS (4)
  1. ADDERALL XR (AMPHETAMINE ASPARTATE, AMPHETAMINE SULFATE, DEXTROAMPHETA [Suspect]
     Indication: ATTENTION DEFICIT/HYPERACTIVITY DISORDER
     Dosage: 25 MG, 1X/DAY:QD, ORAL : 15 MG, 1X/DAY:QD, ORAL
     Route: 048
     Dates: start: 20080301, end: 20080101
  2. ADDERALL XR (AMPHETAMINE ASPARTATE, AMPHETAMINE SULFATE, DEXTROAMPHETA [Suspect]
     Indication: ATTENTION DEFICIT/HYPERACTIVITY DISORDER
     Dosage: 25 MG, 1X/DAY:QD, ORAL : 15 MG, 1X/DAY:QD, ORAL
     Route: 048
     Dates: start: 20080909
  3. PREVACID [Concomitant]
  4. YASMIN [Concomitant]

REACTIONS (10)
  - ABNORMAL BEHAVIOUR [None]
  - DIARRHOEA [None]
  - DISSEMINATED INTRAVASCULAR COAGULATION [None]
  - DRUG TOXICITY [None]
  - HAEMODIALYSIS [None]
  - HYPERTHERMIA MALIGNANT [None]
  - OVERDOSE [None]
  - PHARMACEUTICAL PRODUCT COMPLAINT [None]
  - RENAL FAILURE ACUTE [None]
  - RHABDOMYOLYSIS [None]
